FAERS Safety Report 26187846 (Version 1)
Quarter: 2025Q4

REPORT INFORMATION
  Report Type: Spontaneous
  Country: US (occurrence: US)
  Receive Date: 20251222
  Receipt Date: 20251222
  Transmission Date: 20260117
  Serious: Yes (Life-Threatening, Hospitalization)
  Sender: MYLAN
  Company Number: US-MYLANLABS-2025M1107318

PATIENT
  Age: 23 Year
  Sex: Female

DRUGS (8)
  1. ESMOLOL HYDROCHLORIDE [Suspect]
     Active Substance: ESMOLOL HYDROCHLORIDE
     Indication: Tachycardia
     Dosage: UNK (INFUSION)
  2. NOREPINEPHRINE [Suspect]
     Active Substance: NOREPINEPHRINE
     Indication: Tachycardia
     Dosage: UNK
  3. PROPYLTHIOURACIL [Suspect]
     Active Substance: PROPYLTHIOURACIL
     Indication: Hyperthyroidism
     Dosage: UNK
  4. PROPYLTHIOURACIL [Suspect]
     Active Substance: PROPYLTHIOURACIL
     Indication: Graves^ disease
  5. HYDROCORTISONE [Suspect]
     Active Substance: HYDROCORTISONE
     Indication: Hyperthyroidism
     Dosage: UNK
  6. HYDROCORTISONE [Suspect]
     Active Substance: HYDROCORTISONE
     Indication: Graves^ disease
  7. POTASSIUM IODIDE [Suspect]
     Active Substance: POTASSIUM IODIDE
     Indication: Hyperthyroidism
     Dosage: UNK
  8. POTASSIUM IODIDE [Suspect]
     Active Substance: POTASSIUM IODIDE
     Indication: Graves^ disease

REACTIONS (5)
  - Cardiac arrest [Recovering/Resolving]
  - Cardiomyopathy [Recovering/Resolving]
  - Cardiogenic shock [Recovering/Resolving]
  - Drug ineffective [Unknown]
  - Product prescribing issue [Unknown]
